FAERS Safety Report 5327502-8 (Version None)
Quarter: 2007Q2

REPORT INFORMATION
  Report Type: 
  Country: None (occurrence: None)
  Receive Date: 20070517
  Receipt Date: 20070221
  Transmission Date: 20071010
  Serious: Yes (Hospitalization)
  Sender: FDA-Public Use
  Company Number: US-JNJFOC-20070103202

PATIENT
  Age: 62 Year
  Sex: Male

DRUGS (2)
  1. TRAMADOL IR [Suspect]
     Indication: INTENTIONAL DRUG MISUSE
     Route: 048
  2. COCAINE [Suspect]
     Indication: INTENTIONAL DRUG MISUSE
     Route: 065

REACTIONS (7)
  - AGGRESSION [None]
  - HYPERTENSION [None]
  - INTENTIONAL DRUG MISUSE [None]
  - LETHARGY [None]
  - METABOLIC ACIDOSIS [None]
  - SUICIDE ATTEMPT [None]
  - TACHYCARDIA [None]
